FAERS Safety Report 8777937 (Version 2)
Quarter: 2012Q4

REPORT INFORMATION
  Report Type: Report from Study
  Country: DE (occurrence: DE)
  Receive Date: 20120911
  Receipt Date: 20121101
  Transmission Date: 20130627
  Serious: Yes (Hospitalization)
  Sender: FDA-Public Use
  Company Number: DE-ASTELLAS-2012US007677

PATIENT
  Age: 58 Year
  Sex: Male
  Weight: 55 kg

DRUGS (6)
  1. ERLOTINIB TABLET [Suspect]
     Indication: PANCREATIC CARCINOMA
     Dosage: 100 mg, Unknown/D
     Route: 048
     Dates: start: 20120529, end: 20120830
  2. ERLOTINIB TABLET [Suspect]
     Dosage: 100 mg, UID/QD
     Route: 048
     Dates: start: 20120905
  3. CERNEVIT [Suspect]
     Indication: MALNUTRITION
     Dosage: 750 mg, UID/QD
     Route: 042
     Dates: start: 20120713, end: 20120721
  4. UNSPECIFIED INGREDIENT [Suspect]
     Indication: MALNUTRITION
     Dosage: 10 ml, UID/QD
     Route: 042
     Dates: start: 20120713, end: 20120721
  5. GEMCITABINE [Suspect]
     Indication: PANCREATIC CARCINOMA
     Dosage: 1000 mg/m2, Weekly, day 1, 8, 15
     Route: 042
     Dates: start: 20120529, end: 20120718
  6. GEMCITABINE [Suspect]
     Dosage: UNK
     Route: 042
     Dates: end: 20120828

REACTIONS (3)
  - Endophthalmitis [Recovered/Resolved]
  - Body temperature increased [Not Recovered/Not Resolved]
  - Device related infection [Recovered/Resolved]
